FAERS Safety Report 16502090 (Version 1)
Quarter: 2019Q3

REPORT INFORMATION
  Report Type: Spontaneous
  Country: US (occurrence: US)
  Receive Date: 20190629
  Receipt Date: 20190629
  Transmission Date: 20191004
  Serious: Yes (Hospitalization, Disabling)
  Sender: FDA-Public Use
  Company Number: None

PATIENT
  Age: 65 Year
  Sex: Female
  Weight: 56.25 kg

DRUGS (1)
  1. ALIMTA [Suspect]
     Active Substance: PEMETREXED DISODIUM
     Indication: OVARIAN CANCER
     Dosage: ?          OTHER ROUTE:THROUGH PORT?

REACTIONS (5)
  - Syncope [None]
  - Blood pressure decreased [None]
  - Fall [None]
  - Seizure [None]
  - Drug interaction [None]

NARRATIVE: CASE EVENT DATE: 20190624
